FAERS Safety Report 12716825 (Version 1)
Quarter: 2016Q3

REPORT INFORMATION
  Report Type: Spontaneous
  Country: US (occurrence: US)
  Receive Date: 20160906
  Receipt Date: 20160906
  Transmission Date: 20161109
  Serious: No
  Sender: FDA-Public Use
  Company Number: US-TEVA-675109USA

PATIENT
  Sex: Male

DRUGS (2)
  1. MODAFINIL. [Suspect]
     Active Substance: MODAFINIL
     Route: 065
  2. PROVIGIL [Suspect]
     Active Substance: MODAFINIL
     Route: 065
     Dates: start: 2011

REACTIONS (5)
  - Drug effect decreased [Unknown]
  - Drug ineffective [Unknown]
  - Abdominal discomfort [Unknown]
  - Adverse event [Unknown]
  - Malaise [Unknown]
